FAERS Safety Report 6346492-2 (Version None)
Quarter: 2009Q3

REPORT INFORMATION
  Report Type: 
  Country: None (occurrence: None)
  Receive Date: 20090901
  Receipt Date: 20090210
  Transmission Date: 20100115
  Serious: Yes (Hospitalization)
  Sender: FDA-Public Use
  Company Number: 2008BI034702

PATIENT
  Age: 45 Year
  Sex: Male

DRUGS (11)
  1. TYSABRI [Suspect]
     Indication: MULTIPLE SCLEROSIS
     Dosage: 300 MG;QM;IV
     Route: 042
     Dates: start: 20050101
  2. OXYBUTYNIN CHLORIDE [Concomitant]
  3. PROTONIX [Concomitant]
  4. BACLOFEN [Concomitant]
  5. REQUIP [Concomitant]
  6. LEXAPRO [Concomitant]
  7. AVONEX [Concomitant]
  8. COPAXONE [Concomitant]
  9. REBIF [Concomitant]
  10. IMURAN [Concomitant]
  11. METHOTREXATE [Concomitant]

REACTIONS (4)
  - DRUG INEFFECTIVE [None]
  - MULTIPLE SCLEROSIS RELAPSE [None]
  - ROAD TRAFFIC ACCIDENT [None]
  - SINUSITIS [None]
